FAERS Safety Report 11055141 (Version 1)
Quarter: 2015Q2

REPORT INFORMATION
  Report Type: Spontaneous
  Country: US (occurrence: None)
  Receive Date: 20150421
  Receipt Date: 20150421
  Transmission Date: 20150821
  Serious: Yes (Life-Threatening, Other)
  Sender: FDA-Public Use
  Company Number: None

PATIENT
  Age: 53 Year
  Sex: Female
  Weight: 78.93 kg

DRUGS (1)
  1. XIGDUO XR [Suspect]
     Active Substance: DAPAGLIFLOZIN PROPANEDIOL\METFORMIN HYDROCHLORIDE
     Indication: BLOOD GLUCOSE INCREASED
     Dosage: 1 PILL
     Route: 048
     Dates: start: 20150323, end: 20150331

REACTIONS (13)
  - Abdominal pain [None]
  - Hyperhidrosis [None]
  - Choking [None]
  - Feeling abnormal [None]
  - Nausea [None]
  - Inflammation [None]
  - Myalgia [None]
  - Thinking abnormal [None]
  - Blood glucose decreased [None]
  - Back pain [None]
  - Muscle tightness [None]
  - Abdominal pain upper [None]
  - Throat irritation [None]

NARRATIVE: CASE EVENT DATE: 20150403
